FAERS Safety Report 5553805-8 (Version None)
Quarter: 2007Q4

REPORT INFORMATION
  Report Type: 
  Country: None (occurrence: None)
  Receive Date: 20071213
  Receipt Date: 20071204
  Transmission Date: 20080405
  Serious: Yes (Hospitalization, Other)
  Sender: FDA-Public Use
  Company Number: US-ELI_LILLY_AND_COMPANY-US200712000671

PATIENT
  Sex: Female
  Weight: 48.98 kg

DRUGS (8)
  1. BYETTA [Suspect]
     Dosage: 5 UG, 2/D
     Route: 058
     Dates: start: 20060101, end: 20060101
  2. BYETTA [Suspect]
     Dosage: 10 UG, 2/D
     Route: 058
     Dates: start: 20060101
  3. AMARYL [Concomitant]
     Dosage: UNK, UNKNOWN
  4. FENTANYL [Concomitant]
     Indication: ABDOMINAL PAIN
     Dosage: UNK, UNKNOWN
  5. LYRICA [Concomitant]
     Indication: ABDOMINAL PAIN
     Dosage: UNK, UNKNOWN
  6. PERCOCET [Concomitant]
     Indication: ABDOMINAL PAIN
     Dosage: UNK, UNKNOWN
  7. GLUCOPHAGE [Concomitant]
     Dosage: UNK, UNKNOWN
  8. LANTUS [Concomitant]
     Dosage: UNK, UNKNOWN
     Dates: start: 20070501, end: 20070501

REACTIONS (8)
  - BLOOD GLUCOSE DECREASED [None]
  - BLOOD GLUCOSE INCREASED [None]
  - FALL [None]
  - FEELING ABNORMAL [None]
  - HEAD INJURY [None]
  - HYPOAESTHESIA [None]
  - NERVE INJURY [None]
  - PAIN IN EXTREMITY [None]
